FAERS Safety Report 13072721 (Version 1)
Quarter: 2016Q4

REPORT INFORMATION
  Report Type: Spontaneous
  Country: US (occurrence: US)
  Receive Date: 20161229
  Receipt Date: 20161229
  Transmission Date: 20170207
  Serious: Yes (Other)
  Sender: FDA-Public Use
  Company Number: US-SA-2016SA200197

PATIENT
  Sex: Female

DRUGS (1)
  1. TAXOTERE [Suspect]
     Active Substance: DOCETAXEL
     Indication: BREAST CANCER STAGE I
     Route: 065
     Dates: start: 201303

REACTIONS (10)
  - Anxiety [Unknown]
  - Alopecia [Unknown]
  - Mental disorder [Unknown]
  - Emotional distress [Unknown]
  - Impaired quality of life [Unknown]
  - Impaired work ability [Unknown]
  - Pain [Unknown]
  - Deformity [Unknown]
  - Injury [Unknown]
  - Discomfort [Unknown]

NARRATIVE: CASE EVENT DATE: 201608
